FAERS Safety Report 5970388-9 (Version None)
Quarter: 2008Q4

REPORT INFORMATION
  Report Type: 
  Country: None (occurrence: None)
  Receive Date: 20081126
  Receipt Date: 20081022
  Transmission Date: 20090506
  Serious: No
  Sender: FDA-Public Use
  Company Number: US-ABBOTT-08P-163-0483425-00

PATIENT
  Sex: Female

DRUGS (3)
  1. SIMCOR [Suspect]
     Indication: DRUG USE FOR UNKNOWN INDICATION
     Dosage: 1000MG/20MG
     Dates: start: 20081016
  2. LEVOTHYROXINE SODIUM [Concomitant]
     Indication: DRUG USE FOR UNKNOWN INDICATION
  3. LOMOTIL [Concomitant]
     Indication: DRUG USE FOR UNKNOWN INDICATION
     Dosage: 2 TABS FOUR TIMES DAILY

REACTIONS (2)
  - FLUSHING [None]
  - SKIN BURNING SENSATION [None]
